FAERS Safety Report 17008381 (Version 1)
Quarter: 2019Q4

REPORT INFORMATION
  Report Type: Spontaneous
  Country: GB (occurrence: GB)
  Receive Date: 20191108
  Receipt Date: 20191108
  Transmission Date: 20200122
  Serious: Yes (Hospitalization)
  Sender: FDA-Public Use
  Company Number: GB-TEVA-2019-GB-1135006

PATIENT
  Age: 72 Year
  Sex: Female

DRUGS (17)
  1. PRAVASTATIN. [Concomitant]
     Active Substance: PRAVASTATIN
     Dosage: AT NIGHT, 40 MG
     Route: 048
  2. FORCEVAL [Concomitant]
     Active Substance: FOLIC ACID\IRON\MINERALS\VITAMINS
     Dosage: 1 DOSAGE FORMS
     Route: 048
  3. LOPERAMIDE [Concomitant]
     Active Substance: LOPERAMIDE
     Dosage: 48 MG
     Route: 048
  4. TERBINAFINE. [Concomitant]
     Active Substance: TERBINAFINE
     Dosage: 2 DOSAGE FORMS
     Route: 061
  5. DERMOL [Concomitant]
     Active Substance: BENZALKONIUM CHLORIDE\CHLORHEXIDINE HYDROCHLORIDE\ISOPROPYL MYRISTATE\PARAFFIN
     Route: 061
  6. GLICLAZIDE [Concomitant]
     Active Substance: GLICLAZIDE
     Dosage: IN THE MORNING, 40 MG
     Route: 048
  7. SALBUTAMOL [Concomitant]
     Active Substance: ALBUTEROL
     Dosage: ONE PUFF PRN, 100 MCG
  8. CODEINE [Concomitant]
     Active Substance: CODEINE
     Dosage: MORNING AND NIGHT, 30 MG
     Route: 048
  9. WARFARIN [Suspect]
     Active Substance: WARFARIN
     Dosage: 4 MG
     Route: 048
  10. OMEPRAZOLE. [Concomitant]
     Active Substance: OMEPRAZOLE
     Dosage: 80 MG, MORNING AND NIGHT
     Route: 048
  11. FUROSEMIDE. [Concomitant]
     Active Substance: FUROSEMIDE
     Dosage: 20 MG, IN THE MORNING
     Route: 048
  12. ISOPROPYL MYRISTATE [Concomitant]
     Active Substance: ISOPROPYL MYRISTATE
     Dosage: 4 DOSAGE FORMS, ISOPROPYL MYRISTATE 15% / LIQUID PARAFFIN 15% GEL - 4 TIMES DAILY TO LEGS
     Route: 061
  13. LIQUID PARAFFIN [Concomitant]
     Dosage: ISOPROPYL MYRISTATE 15% / LIQUID PARAFFIN 15% GEL - 4 TIMES DAILY TO LEGS, 4 DOSAGE FORMS
     Route: 061
  14. CALCIUM AND COLECALCIFEROL [Concomitant]
     Dosage: 2 DOSAGE FORMS
     Route: 048
  15. TRELEGY ELLIPTA [Concomitant]
     Active Substance: FLUTICASONE FUROATE\UMECLIDINIUM BROMIDE\VILANTEROL TRIFENATATE
     Dosage: 1 DOSAGE FORMS, IN THE MORNING
  16. COLECALCIFEROL [Concomitant]
     Active Substance: CHOLECALCIFEROL
     Dosage: 40000 IU, THURSDAY AND SUNDAY
     Route: 048
  17. CITALOPRAM [Concomitant]
     Active Substance: CITALOPRAM HYDROBROMIDE
     Dosage: IN THE MORNING, 10 MG
     Route: 048

REACTIONS (2)
  - Haematuria [Recovering/Resolving]
  - Abdominal pain [Unknown]

NARRATIVE: CASE EVENT DATE: 20190929
